FAERS Safety Report 12797905 (Version 1)
Quarter: 2016Q3

REPORT INFORMATION
  Report Type: Spontaneous
  Country: US (occurrence: US)
  Receive Date: 20160930
  Receipt Date: 20160930
  Transmission Date: 20161109
  Serious: No
  Sender: FDA-Public Use
  Company Number: US-LUPIN PHARMACEUTICALS INC.-E2B_00005256

PATIENT
  Age: 50 Year
  Sex: Female

DRUGS (1)
  1. CEPHALEXIN CAPSULES USP 500MG [Suspect]
     Active Substance: CEPHALEXIN
     Indication: INFECTION
     Route: 048

REACTIONS (2)
  - Alopecia [Unknown]
  - Product odour abnormal [Unknown]
